FAERS Safety Report 15178855 (Version 1)
Quarter: 2018Q3

REPORT INFORMATION
  Report Type: Spontaneous
  Country: FR (occurrence: FR)
  Receive Date: 20180722
  Receipt Date: 20180722
  Transmission Date: 20181010
  Serious: Yes (Hospitalization)
  Sender: FDA-Public Use
  Company Number: PHHY2018FR051783

PATIENT
  Age: 55 Year
  Sex: Female
  Weight: 63 kg

DRUGS (1)
  1. AFINITOR [Suspect]
     Active Substance: EVEROLIMUS
     Indication: BREAST CANCER STAGE III
     Dosage: 7.5 MG, QD
     Route: 048
     Dates: start: 20170711, end: 20180405

REACTIONS (8)
  - Lung disorder [Recovering/Resolving]
  - Dry eye [Recovering/Resolving]
  - Eye oedema [Recovering/Resolving]
  - Anaemia [Recovering/Resolving]
  - Fatigue [Recovering/Resolving]
  - Blood cholesterol increased [Recovering/Resolving]
  - Aphthous ulcer [Recovering/Resolving]
  - Weight decreased [Recovering/Resolving]

NARRATIVE: CASE EVENT DATE: 20180301
